FAERS Safety Report 9834826 (Version 1)
Quarter: 2014Q1

REPORT INFORMATION
  Report Type: Spontaneous
  Country: US (occurrence: US)
  Receive Date: 20140122
  Receipt Date: 20140122
  Transmission Date: 20141002
  Serious: No
  Sender: FDA-Public Use
  Company Number: US-BAUSCH-BL-2013-002616

PATIENT
  Age: 56 Year
  Sex: Female

DRUGS (2)
  1. ALAWAY (KETOTIFEN FUMARATE OPHTHALMIC SOLUTION) [Suspect]
     Indication: EYE ALLERGY
     Dosage: ONE DROP INTO EACH EYE TWICE DAILY
     Route: 047
     Dates: start: 20130418, end: 20130425
  2. OLOPATADINE HYDROCHLORIDE [Concomitant]
     Indication: EYE ALLERGY

REACTIONS (1)
  - Instillation site pain [Recovered/Resolved]
